FAERS Safety Report 11414515 (Version 2)
Quarter: 2015Q3

REPORT INFORMATION
  Report Type: Spontaneous
  Country: US (occurrence: None)
  Receive Date: 20150821
  Receipt Date: 20150901
  Transmission Date: 20151125
  Serious: Yes (Other)
  Sender: FDA-Public Use
  Company Number: 2015NUEUSA00587

PATIENT
  Age: 60 Year
  Sex: Female
  Weight: 61.2 kg

DRUGS (3)
  1. BUPROPION (BUPROPION) [Concomitant]
     Active Substance: BUPROPION
  2. NUEDEXTA [Suspect]
     Active Substance: DEXTROMETHORPHAN HYDROBROMIDE\QUINIDINE SULFATE
     Indication: AFFECT LABILITY
     Route: 048
  3. ZYRTEC [Concomitant]
     Active Substance: CETIRIZINE HYDROCHLORIDE

REACTIONS (11)
  - Swelling face [None]
  - Photophobia [None]
  - Intentional product use issue [None]
  - Diarrhoea [None]
  - Anaphylactic reaction [None]
  - Crying [None]
  - Dizziness [None]
  - Nausea [None]
  - Suicidal ideation [None]
  - Angioedema [None]
  - Diplopia [None]

NARRATIVE: CASE EVENT DATE: 2013
